FAERS Safety Report 4760031-9 (Version None)
Quarter: 2005Q3

REPORT INFORMATION
  Report Type: 
  Country: None (occurrence: None)
  Receive Date: 20050831
  Receipt Date: 20050823
  Transmission Date: 20060218
  Serious: Yes (Other)
  Sender: FDA-Public Use
  Company Number: 2005051715

PATIENT
  Age: 77 Year
  Sex: Female

DRUGS (7)
  1. ALDACTONE [Suspect]
     Indication: HYPERTENSION
     Dosage: 50 MG (25 MG, TWICE DAILY), ORAL
     Route: 048
     Dates: start: 20050314
  2. HYTRIN [Concomitant]
  3. HYDROCHLOROTHIAZIDE [Concomitant]
  4. ATENOLOL [Concomitant]
  5. NOVOLOG [Concomitant]
  6. METHYLPREDNISOLONE (METHYLPREDNISOLONE) [Concomitant]
  7. MICARDIS [Concomitant]

REACTIONS (2)
  - BLOOD GLUCOSE INCREASED [None]
  - HYPONATRAEMIA [None]
